FAERS Safety Report 4851236-7 (Version None)
Quarter: 2005Q4

REPORT INFORMATION
  Report Type: 
  Country: None (occurrence: None)
  Receive Date: 20051208
  Receipt Date: 20051121
  Transmission Date: 20060501
  Serious: Yes (Hospitalization)
  Sender: FDA-Public Use
  Company Number: DSA_26922_2005

PATIENT
  Age: 64 Year
  Sex: Female
  Weight: 51.7101 kg

DRUGS (11)
  1. ATIVAN [Suspect]
     Indication: BIPOLAR DISORDER
     Dosage: 0.5 MG Q DAY PO
     Route: 048
  2. ATIVAN [Suspect]
     Indication: BIPOLAR DISORDER
     Dosage: 0.5 MG BID PO
     Route: 048
     Dates: start: 20030822
  3. CLOZAPINE [Suspect]
     Indication: BIPOLAR DISORDER
     Dosage: 12.5 MG Q DAY PO
     Route: 048
     Dates: start: 20040201, end: 20050603
  4. TRAZODONE [Suspect]
     Indication: SLEEP DISORDER
     Dosage: 50 MG QHS PO
     Route: 048
     Dates: start: 20040115
  5. PREVACID [Concomitant]
  6. NEURONTIN [Concomitant]
  7. MILK OF MAGNESIA TAB [Concomitant]
  8. LEVOXYL [Concomitant]
  9. COLACE [Concomitant]
  10. MICADERM [Concomitant]
  11. SENOKOT [Concomitant]

REACTIONS (4)
  - BLOOD PRESSURE DIASTOLIC DECREASED [None]
  - SINUS BRADYCARDIA [None]
  - SOMNOLENCE [None]
  - WHITE BLOOD CELL COUNT DECREASED [None]
